FAERS Safety Report 19589407 (Version 2)
Quarter: 2021Q4

REPORT INFORMATION
  Report Type: Report from Study
  Country: CA (occurrence: CA)
  Receive Date: 20210721
  Receipt Date: 20211125
  Transmission Date: 20220304
  Serious: Yes (Death)
  Sender: FDA-Public Use
  Company Number: CA-BAYER-2021-174341

PATIENT

DRUGS (1)
  1. EYLEA [Suspect]
     Active Substance: AFLIBERCEPT
     Indication: Diabetic retinal oedema
     Dosage: UNK
     Dates: start: 20181024

REACTIONS (1)
  - Death [Fatal]

NARRATIVE: CASE EVENT DATE: 20210419
